FAERS Safety Report 9790060 (Version 1)
Quarter: 2013Q4

REPORT INFORMATION
  Report Type: Spontaneous
  Country: US (occurrence: US)
  Receive Date: 20131231
  Receipt Date: 20131231
  Transmission Date: 20140711
  Serious: No
  Sender: FDA-Public Use
  Company Number: US-009507513-1312USA012600

PATIENT
  Age: 35 Year
  Sex: Male

DRUGS (2)
  1. SAPHRIS [Suspect]
     Indication: ANXIETY
     Dosage: 10 MG, QD (RAPID DISSOLVE 10)
     Route: 060
     Dates: start: 201208
  2. LEXAPRO [Concomitant]

REACTIONS (1)
  - Tooth discolouration [Not Recovered/Not Resolved]
